FAERS Safety Report 19175238 (Version 1)
Quarter: 2021Q2

REPORT INFORMATION
  Report Type: Spontaneous
  Country: DE (occurrence: DE)
  Receive Date: 20210423
  Receipt Date: 20210423
  Transmission Date: 20210717
  Serious: Yes (Other)
  Sender: FDA-Public Use
  Company Number: DE-PFIZER INC-2021397739

PATIENT
  Age: 39 Year
  Sex: Female

DRUGS (1)
  1. CYTOTEC [Suspect]
     Active Substance: MISOPROSTOL
     Indication: LABOUR INDUCTION
     Dosage: UNK, 3X/DAY
     Route: 048
     Dates: start: 20110422, end: 20110424

REACTIONS (6)
  - Uterine tachysystole [Recovered/Resolved]
  - Maternal exposure during pregnancy [Unknown]
  - Amniorrhexis [Recovered/Resolved]
  - Pain [Recovered/Resolved]
  - Syncope [Unknown]
  - Off label use [Unknown]

NARRATIVE: CASE EVENT DATE: 20110422
